FAERS Safety Report 6476077-9 (Version None)
Quarter: 2009Q4

REPORT INFORMATION
  Report Type: 
  Country: None (occurrence: None)
  Receive Date: 20091204
  Receipt Date: 20091119
  Transmission Date: 20100525
  Serious: Yes (Other)
  Sender: FDA-Public Use
  Company Number: JP-GENENTECH-285824

PATIENT
  Sex: Male
  Weight: 68 kg

DRUGS (13)
  1. XOLAIR [Suspect]
     Indication: ASTHMA
     Dosage: 375 MG, QOW
     Route: 058
     Dates: start: 20090424
  2. XOLAIR [Suspect]
     Dosage: 375 MG, QOW
     Dates: start: 20090512
  3. XOLAIR [Suspect]
     Dosage: 375 MG, QOW
     Dates: start: 20090529
  4. XOLAIR [Suspect]
     Dosage: 375 MG, QOW
     Dates: start: 20090614
  5. XOLAIR [Suspect]
     Dosage: 375 MG, QOW
     Dates: start: 20090624, end: 20090624
  6. STEROIDS (UNK INGREDIENTS) [Concomitant]
     Indication: DRUG USE FOR UNKNOWN INDICATION
  7. ADRENALIN HORMONE [Concomitant]
     Indication: DRUG USE FOR UNKNOWN INDICATION
  8. FLUTIDE [Concomitant]
     Indication: DRUG USE FOR UNKNOWN INDICATION
  9. FLUTIDE [Concomitant]
  10. SEREVENT [Concomitant]
     Indication: DRUG USE FOR UNKNOWN INDICATION
     Dosage: UNK
     Dates: start: 20081001
  11. ONON [Concomitant]
     Indication: DRUG USE FOR UNKNOWN INDICATION
     Dosage: UNK
     Dates: start: 20081001
  12. CELESTAMINE TAB [Concomitant]
     Indication: DRUG USE FOR UNKNOWN INDICATION
     Dosage: UNK
     Dates: start: 20081001, end: 20090424
  13. SOLU-MEDROL [Concomitant]
     Indication: DRUG USE FOR UNKNOWN INDICATION

REACTIONS (8)
  - BRONCHOPULMONARY ASPERGILLOSIS [None]
  - C-REACTIVE PROTEIN INCREASED [None]
  - EOSINOPHIL COUNT INCREASED [None]
  - HAEMOGLOBIN DECREASED [None]
  - LYMPHOCYTE COUNT INCREASED [None]
  - PYREXIA [None]
  - RED BLOOD CELL COUNT DECREASED [None]
  - WHITE BLOOD CELL COUNT INCREASED [None]
